FAERS Safety Report 9639898 (Version 1)
Quarter: 2013Q4

REPORT INFORMATION
  Report Type: Report from Study
  Country: NL (occurrence: NL)
  Receive Date: 20131023
  Receipt Date: 20131023
  Transmission Date: 20140711
  Serious: Yes (Other)
  Sender: FDA-Public Use
  Company Number: NL-BAYER-2013-126739

PATIENT
  Age: 50 Year
  Sex: Female

DRUGS (2)
  1. BETAFERON [Suspect]
     Dosage: 250 ?G, QOD
     Dates: start: 20130123
  2. VESICARE [Concomitant]
     Indication: BLADDER DISORDER
     Dosage: 20 MG, BID

REACTIONS (1)
  - Ascites [Not Recovered/Not Resolved]
